FAERS Safety Report 7672635-4 (Version None)
Quarter: 2011Q3

REPORT INFORMATION
  Report Type: 
  Country: None (occurrence: None)
  Receive Date: 20110804
  Receipt Date: 20110720
  Transmission Date: 20111222
  Serious: Yes (Other)
  Sender: FDA-Public Use
  Company Number: IMP_05412_2011

PATIENT
  Sex: Female

DRUGS (4)
  1. KEPPRA [Suspect]
     Indication: PRODUCT USED FOR UNKNOWN INDICATION
     Dosage: (DF)
  2. LAMICTAL [Suspect]
     Indication: PRODUCT USED FOR UNKNOWN INDICATION
     Dosage: (DF)
  3. BUPROPION HCL [Suspect]
     Indication: BIPOLAR DISORDER
     Dosage: (DF)
  4. BUPROPION HCL [Suspect]
     Indication: CONVULSION
     Dosage: (DF)

REACTIONS (19)
  - MUSCLE SPASMS [None]
  - WEIGHT INCREASED [None]
  - VISUAL IMPAIRMENT [None]
  - MOOD SWINGS [None]
  - SOMNOLENCE [None]
  - CONVULSION [None]
  - ANXIETY [None]
  - DEPRESSION [None]
  - MALAISE [None]
  - OEDEMA PERIPHERAL [None]
  - COUGH [None]
  - PANIC REACTION [None]
  - AGORAPHOBIA [None]
  - UPPER RESPIRATORY TRACT IRRITATION [None]
  - DYSPNOEA [None]
  - DECREASED APPETITE [None]
  - IMPAIRED DRIVING ABILITY [None]
  - PRURITUS [None]
  - HOT FLUSH [None]
